FAERS Safety Report 11683617 (Version 1)
Quarter: 2015Q4

REPORT INFORMATION
  Report Type: Spontaneous
  Country: US (occurrence: US)
  Receive Date: 20151029
  Receipt Date: 20151029
  Transmission Date: 20160304
  Serious: No
  Sender: FDA-Public Use
  Company Number: US-BAYER-2015-448245

PATIENT
  Age: 78 Year
  Sex: Female
  Weight: 63.49 kg

DRUGS (6)
  1. ALEVE [Suspect]
     Active Substance: NAPROXEN SODIUM
     Indication: HEADACHE
     Dosage: 2 DF, PRN
     Route: 048
     Dates: start: 2011
  2. BAYER GENUINE ASPIRIN [Suspect]
     Active Substance: ASPIRIN
     Indication: HEADACHE
     Dosage: 1 DF, PRN
     Route: 048
  3. PRESERVISION EYE VITAMIN AND MINERAL SUPPL. [Concomitant]
  4. BIOTIN [Concomitant]
     Active Substance: BIOTIN
  5. IRON [Concomitant]
     Active Substance: IRON
  6. B12 VITAMIN STAR [Concomitant]

REACTIONS (2)
  - Product use issue [None]
  - Drug ineffective [None]

NARRATIVE: CASE EVENT DATE: 20151019
